FAERS Safety Report 8597171-2 (Version None)
Quarter: 2012Q3

REPORT INFORMATION
  Report Type: 
  Country: None (occurrence: None)
  Receive Date: 20120816
  Receipt Date: 20120807
  Transmission Date: 20120928
  Serious: No
  Sender: FDA-Public Use
  Company Number: US-BIOGENIDEC-2012BI030429

PATIENT
  Sex: Female

DRUGS (1)
  1. TYSABRI [Suspect]
     Indication: MULTIPLE SCLEROSIS
     Route: 042
     Dates: start: 20120521, end: 20120606

REACTIONS (8)
  - PRURITUS [None]
  - HYPOAESTHESIA [None]
  - ERYTHEMA [None]
  - TINNITUS [None]
  - DRUG SPECIFIC ANTIBODY PRESENT [None]
  - BLOOD PRESSURE INCREASED [None]
  - INTRACRANIAL PRESSURE INCREASED [None]
  - PARAESTHESIA [None]
